FAERS Safety Report 7725939-0 (Version None)
Quarter: 2011Q3

REPORT INFORMATION
  Report Type: 
  Country: None (occurrence: None)
  Receive Date: 20110902
  Receipt Date: 20110829
  Transmission Date: 20111222
  Serious: Yes (Hospitalization, Other)
  Sender: FDA-Public Use
  Company Number: US-ABBOTT-11P-163-0734901-00

PATIENT
  Sex: Female
  Weight: 63.56 kg

DRUGS (31)
  1. DEPAKOTE [Suspect]
     Indication: CONVULSION
     Route: 065
  2. NOPALEA (PLANT ALKALOIDS AND OTHER NATURAL PRODUCTS) [Suspect]
     Indication: ARTHRALGIA
     Dates: start: 20100101
  3. MACROBID [Suspect]
     Indication: PRODUCT USED FOR UNKNOWN INDICATION
     Route: 065
  4. VALSARTAN [Suspect]
     Indication: PRODUCT USED FOR UNKNOWN INDICATION
     Route: 065
  5. LIDOCAINE [Suspect]
     Indication: INGROWING NAIL
     Route: 065
     Dates: start: 20100513, end: 20100513
  6. AMLODIPINE BESYLATE [Suspect]
     Indication: HYPERTENSION
     Dosage: FILM-COATED; DAILY
     Route: 048
     Dates: start: 19950101
  7. BACTRIM [Suspect]
     Indication: PRODUCT USED FOR UNKNOWN INDICATION
     Route: 065
  8. AVAPRO [Suspect]
     Indication: HYPERTENSION
     Route: 065
  9. AMLODIPINE BESYLATE [Suspect]
     Dosage: FILM COATED
     Route: 048
  10. LISINOPRIL [Suspect]
     Indication: PRODUCT USED FOR UNKNOWN INDICATION
     Route: 065
  11. XANAX [Suspect]
     Indication: PRODUCT USED FOR UNKNOWN INDICATION
     Dosage: DAILY
     Route: 065
  12. CARDIZEM [Suspect]
     Indication: PRODUCT USED FOR UNKNOWN INDICATION
     Route: 065
  13. NEBIVOLOL HCL [Suspect]
     Indication: PRODUCT USED FOR UNKNOWN INDICATION
     Route: 065
  14. CIPROFLOXACIN [Suspect]
     Indication: PRODUCT USED FOR UNKNOWN INDICATION
     Route: 065
  15. AMLODIPINE BESYLATE [Suspect]
     Dosage: FILM COATED
     Route: 048
     Dates: start: 20100719, end: 20100721
  16. LEVOTHYROXINE SODIUM [Concomitant]
     Indication: PRODUCT USED FOR UNKNOWN INDICATION
  17. TOPROL-XL [Suspect]
     Indication: PRODUCT USED FOR UNKNOWN INDICATION
     Route: 048
  18. HYDROCHLOROTHIAZIDE [Suspect]
     Indication: PRODUCT USED FOR UNKNOWN INDICATION
     Dates: start: 20110307
  19. NOPALEA (PLANT ALKALOIDS AND OTHER NATURAL PRODUCTS) [Suspect]
     Indication: BLOOD TRIGLYCERIDES INCREASED
  20. AMLODIPINE BESYLATE [Suspect]
     Dosage: FILM-COATED; DAILY
     Route: 048
     Dates: start: 19970101
  21. LOSARTAN POTASSIUM [Suspect]
     Indication: PRODUCT USED FOR UNKNOWN INDICATION
     Route: 065
  22. REGLAN [Suspect]
     Indication: PRODUCT USED FOR UNKNOWN INDICATION
  23. ATACAND [Suspect]
     Indication: HYPERTENSION
     Route: 048
  24. CLONIDINE [Concomitant]
     Indication: PRODUCT USED FOR UNKNOWN INDICATION
  25. ATACAND [Suspect]
     Route: 048
  26. PHENYTOIN [Suspect]
     Indication: PRODUCT USED FOR UNKNOWN INDICATION
     Route: 065
  27. FUROSEMIDE [Suspect]
     Indication: PRODUCT USED FOR UNKNOWN INDICATION
     Route: 065
  28. LEVAQUIN [Suspect]
     Indication: PRODUCT USED FOR UNKNOWN INDICATION
     Route: 065
  29. BENICAR [Suspect]
     Indication: HYPERTENSION
     Dosage: FILM-COATED
     Route: 065
     Dates: start: 20070101
  30. AMLODIPINE BESYLATE [Suspect]
     Dosage: FILM-COATED TWICE A DAY
     Route: 048
     Dates: start: 20100101
  31. AMLODIPINE BESYLATE [Suspect]
     Dosage: FILM COATED
     Route: 048
     Dates: start: 20100722

REACTIONS (21)
  - BURNING SENSATION [None]
  - BLOOD TRIGLYCERIDES INCREASED [None]
  - HYPOAESTHESIA [None]
  - ARTERIOGRAM CORONARY ABNORMAL [None]
  - ABDOMINAL PAIN [None]
  - ANAEMIA [None]
  - BLOOD PRESSURE INCREASED [None]
  - BLOOD COUNT ABNORMAL [None]
  - PALPITATIONS [None]
  - HYPERTENSION [None]
  - GASTRIC DISORDER [None]
  - DIZZINESS [None]
  - CHOLECYSTECTOMY [None]
  - LOSS OF CONSCIOUSNESS [None]
  - TOE OPERATION [None]
  - FULL BLOOD COUNT DECREASED [None]
  - INGROWING NAIL [None]
  - HEADACHE [None]
  - PLATELET COUNT DECREASED [None]
  - CYSTITIS [None]
  - WEIGHT DECREASED [None]
